FAERS Safety Report 8420401-4 (Version None)
Quarter: 2012Q2

REPORT INFORMATION
  Report Type: 
  Country: None (occurrence: None)
  Receive Date: 20120607
  Receipt Date: 20120530
  Transmission Date: 20120825
  Serious: Yes (Hospitalization)
  Sender: FDA-Public Use
  Company Number: JP-MERCK-1206USA00530

PATIENT
  Age: 50 Year
  Sex: Male

DRUGS (1)
  1. PROPECIA [Suspect]
     Dosage: DAILY DOSAGE UNKNOWN
     Route: 048

REACTIONS (2)
  - NEPHRITIS [None]
  - URINE ANALYSIS ABNORMAL [None]
